FAERS Safety Report 14543846 (Version 1)
Quarter: 2018Q1

REPORT INFORMATION
  Report Type: Spontaneous
  Country: MX (occurrence: MX)
  Receive Date: 20180216
  Receipt Date: 20180216
  Transmission Date: 20180509
  Serious: Yes (Disabling)
  Sender: FDA-Public Use
  Company Number: MX-BIOMARINAP-MX-2018-117119

PATIENT
  Age: 15 Year
  Sex: Female
  Weight: 30 kg

DRUGS (1)
  1. ALDURAZYME [Suspect]
     Active Substance: LARONIDASE
     Indication: MUCOPOLYSACCHARIDOSIS I
     Dosage: UNK
     Route: 041
     Dates: start: 20120830

REACTIONS (2)
  - Cartilage injury [Not Recovered/Not Resolved]
  - Walking disability [Not Recovered/Not Resolved]
